FAERS Safety Report 6057926-5 (Version None)
Quarter: 2009Q1

REPORT INFORMATION
  Report Type: 
  Country: None (occurrence: None)
  Receive Date: 20090129
  Receipt Date: 20090120
  Transmission Date: 20090719
  Serious: Yes (Hospitalization)
  Sender: FDA-Public Use
  Company Number: JP-MERCK-0812USA00657

PATIENT
  Age: 80 Year
  Sex: Male

DRUGS (22)
  1. FOSAMAX [Suspect]
     Indication: OSTEOPOROSIS
     Route: 048
     Dates: start: 20080118, end: 20081010
  2. RHEUMATREX [Concomitant]
     Indication: SERONEGATIVE ARTHRITIS
     Route: 048
     Dates: start: 20080215, end: 20080228
  3. PREDNISOLONE [Concomitant]
     Indication: SERONEGATIVE ARTHRITIS
     Route: 048
     Dates: start: 20071228, end: 20080110
  4. AVISHOT [Concomitant]
     Indication: BENIGN PROSTATIC HYPERPLASIA
     Route: 048
     Dates: start: 20071203
  5. ADALAT CC [Concomitant]
     Indication: HYPERTENSION
     Route: 048
     Dates: start: 20071130, end: 20081010
  6. BASEN [Concomitant]
     Indication: DIABETES MELLITUS
     Route: 048
     Dates: start: 20071130, end: 20081010
  7. PREDNISOLONE [Concomitant]
     Indication: RHEUMATOID ARTHRITIS
     Route: 048
     Dates: start: 20071214, end: 20071220
  8. PREDNISOLONE [Concomitant]
     Route: 048
     Dates: start: 20071221, end: 20071227
  9. PREDNISOLONE [Concomitant]
     Route: 048
     Dates: start: 20080111, end: 20080117
  10. PREDNISOLONE [Concomitant]
     Route: 048
     Dates: start: 20080118, end: 20080124
  11. PREDNISOLONE [Concomitant]
     Route: 048
     Dates: start: 20080125, end: 20080228
  12. PREDNISOLONE [Concomitant]
     Route: 048
     Dates: start: 20080229, end: 20080403
  13. PREDNISOLONE [Concomitant]
     Route: 048
     Dates: start: 20080404, end: 20080515
  14. PREDNISOLONE [Concomitant]
     Route: 048
     Dates: start: 20080516, end: 20080612
  15. PREDNISOLONE [Concomitant]
     Route: 048
     Dates: start: 20080613, end: 20081030
  16. PREDNISOLONE [Concomitant]
     Route: 048
     Dates: start: 20081031
  17. PREDNISOLONE [Concomitant]
     Route: 048
     Dates: start: 20080229, end: 20080403
  18. COTRIM [Concomitant]
     Route: 048
     Dates: start: 20080111, end: 20080320
  19. RHEUMATREX [Concomitant]
     Route: 048
     Dates: start: 20080229, end: 20080320
  20. RHEUMATREX [Concomitant]
     Route: 048
     Dates: start: 20080321, end: 20080808
  21. KETAS [Suspect]
     Indication: CEREBROVASCULAR DISORDER
     Route: 048
     Dates: start: 20071130, end: 20081010
  22. AMARYL [Suspect]
     Indication: DIABETES MELLITUS
     Route: 065
     Dates: start: 20071130, end: 20081010

REACTIONS (2)
  - ERYTHEMA MULTIFORME [None]
  - RASH [None]
